FAERS Safety Report 11253182 (Version 1)
Quarter: 2015Q3

REPORT INFORMATION
  Report Type: Spontaneous
  Country: US (occurrence: US)
  Receive Date: 20150709
  Receipt Date: 20150709
  Transmission Date: 20151125
  Serious: No
  Sender: FDA-Public Use
  Company Number: US-LEO PHARMA-235319

PATIENT
  Sex: Female

DRUGS (1)
  1. PICATO [Suspect]
     Active Substance: INGENOL MEBUTATE
     Indication: ACTINIC KERATOSIS

REACTIONS (4)
  - Eye swelling [Recovering/Resolving]
  - Eye infection [Recovered/Resolved]
  - Application site vesicles [Recovered/Resolved]
  - Accidental exposure to product [Unknown]
